FAERS Safety Report 8581587-4 (Version None)
Quarter: 2012Q3

REPORT INFORMATION
  Report Type: 
  Country: None (occurrence: None)
  Receive Date: 20120809
  Receipt Date: 20120801
  Transmission Date: 20120928
  Serious: Yes (Other)
  Sender: FDA-Public Use
  Company Number: CA-ASTELLAS-2012US006670

PATIENT
  Sex: Male

DRUGS (1)
  1. AMEVIVE [Suspect]
     Indication: PSORIASIS
     Dosage: UNK
     Route: 030
     Dates: end: 20071001

REACTIONS (7)
  - FATIGUE [None]
  - HERPES ZOSTER [None]
  - DEPRESSION [None]
  - INSOMNIA [None]
  - PULMONARY SARCOIDOSIS [None]
  - EYE DISORDER [None]
  - NEURALGIA [None]
